FAERS Safety Report 5333489-4 (Version None)
Quarter: 2007Q1

REPORT INFORMATION
  Report Type: 
  Country: None (occurrence: None)
  Receive Date: 20070308
  Receipt Date: 20061117
  Transmission Date: 20070707
  Serious: No
  Sender: FDA-Public Use
  Company Number: 2006-BP-13494BP

PATIENT

DRUGS (1)
  1. SPIRIVA [Suspect]
     Dosage: (18 MCG) IH
     Route: 055

REACTIONS (1)
  - TONGUE DISCOLOURATION [None]
